FAERS Safety Report 21377182 (Version 1)
Quarter: 2022Q3

REPORT INFORMATION
  Report Type: Spontaneous
  Country: US (occurrence: US)
  Receive Date: 20220926
  Receipt Date: 20220926
  Transmission Date: 20221027
  Serious: No
  Sender: FDA-Public Use
  Company Number: US-BIOMARINAP-US-2022-145381

PATIENT

DRUGS (1)
  1. PALYNZIQ [Suspect]
     Active Substance: PEGVALIASE-PQPZ
     Indication: Foetal exposure during pregnancy
     Dosage: 20 MILLIGRAM
     Route: 064

REACTIONS (3)
  - Phenylketonuria [Unknown]
  - Dairy intolerance [Unknown]
  - Feeding disorder [Unknown]
